FAERS Safety Report 19458391 (Version 2)
Quarter: 2021Q3

REPORT INFORMATION
  Report Type: Spontaneous
  Country: BR (occurrence: BR)
  Receive Date: 20210624
  Receipt Date: 20210707
  Transmission Date: 20211014
  Serious: Yes (Hospitalization, Other)
  Sender: FDA-Public Use
  Company Number: BR-PFIZER INC-2021739851

PATIENT
  Age: 23 Year
  Sex: Male

DRUGS (12)
  1. POLYMYXIN [Suspect]
     Active Substance: POLYMYXIN
     Indication: COVID-19 PNEUMONIA
     Dosage: UNK
  2. DEXAMETHASONE. [Suspect]
     Active Substance: DEXAMETHASONE
     Indication: COVID-19
     Dosage: 6 MG
  3. TIGECYCLINE. [Suspect]
     Active Substance: TIGECYCLINE
     Indication: COVID-19 PNEUMONIA
     Dosage: UNK
  4. TAZOCIN [Suspect]
     Active Substance: PIPERACILLIN SODIUM\TAZOBACTAM SODIUM
     Indication: COVID-19 PNEUMONIA
     Dosage: UNK
  5. VANCOMYCIN [Suspect]
     Active Substance: VANCOMYCIN
     Indication: COVID-19 PNEUMONIA
     Dosage: UNK
  6. CEFTRIAXONE. [Suspect]
     Active Substance: CEFTRIAXONE
     Indication: COVID-19 PNEUMONIA
     Dosage: UNK
  7. ERTAPENEM. [Suspect]
     Active Substance: ERTAPENEM SODIUM
     Indication: COVID-19 PNEUMONIA
     Dosage: UNK
  8. DAPTOMYCIN. [Suspect]
     Active Substance: DAPTOMYCIN
     Indication: COVID-19 PNEUMONIA
     Dosage: UNK
  9. PYRIDOSTIGMINE [Concomitant]
     Active Substance: PYRIDOSTIGMINE
     Indication: ANTIACETYLCHOLINE RECEPTOR ANTIBODY POSITIVE
     Dosage: UNK
  10. AMIKACIN. [Suspect]
     Active Substance: AMIKACIN
     Indication: COVID-19 PNEUMONIA
     Dosage: UNK
  11. MEROPENEM. [Suspect]
     Active Substance: MEROPENEM
     Indication: COVID-19 PNEUMONIA
     Dosage: UNK
  12. LINEZOLID. [Suspect]
     Active Substance: LINEZOLID
     Indication: COVID-19 PNEUMONIA
     Dosage: UNK

REACTIONS (2)
  - Off label use [Unknown]
  - Myasthenia gravis crisis [Recovered/Resolved]
